FAERS Safety Report 4785694-3 (Version None)
Quarter: 2005Q4

REPORT INFORMATION
  Report Type: 
  Country: None (occurrence: None)
  Receive Date: 20051003
  Receipt Date: 20050926
  Transmission Date: 20060501
  Serious: Yes (Other)
  Sender: FDA-Public Use
  Company Number: PHBS2005IT14232

PATIENT
  Sex: Female

DRUGS (1)
  1. FEMARA [Suspect]

REACTIONS (3)
  - CONTRALATERAL BREAST CANCER [None]
  - RADIOTHERAPY [None]
  - VAGINAL CANCER STAGE II [None]
